FAERS Safety Report 24053857 (Version 1)
Quarter: 2024Q3

REPORT INFORMATION
  Report Type: Spontaneous
  Country: FR (occurrence: None)
  Receive Date: 20240705
  Receipt Date: 20240705
  Transmission Date: 20241017
  Serious: Yes (Hospitalization)
  Sender: ASTRAZENECA
  Company Number: 2024A151102

PATIENT
  Age: 84 Year
  Sex: Female

DRUGS (3)
  1. DAPAGLIFLOZIN [Suspect]
     Active Substance: DAPAGLIFLOZIN
     Indication: Type 2 diabetes mellitus
     Route: 048
  2. INSULIN NOS [Concomitant]
     Active Substance: INSULIN NOS
  3. 2 GLIFLOZIN [Concomitant]

REACTIONS (3)
  - Skin ulcer [Unknown]
  - Soft tissue necrosis [Unknown]
  - Diabetes mellitus inadequate control [Unknown]
